FAERS Safety Report 18064871 (Version 1)
Quarter: 2020Q3

REPORT INFORMATION
  Report Type: Spontaneous
  Country: GB (occurrence: GB)
  Receive Date: 20200724
  Receipt Date: 20200724
  Transmission Date: 20201103
  Serious: Yes (Disabling)
  Sender: FDA-Public Use
  Company Number: GB-ACCORD-192138

PATIENT
  Age: 91 Year
  Sex: Female
  Weight: 75 kg

DRUGS (10)
  1. FUROSEMIDE. [Concomitant]
     Active Substance: FUROSEMIDE
     Dosage: MORNING
     Dates: start: 20191127
  2. FLUCLOXACILLIN [Concomitant]
     Active Substance: FLUCLOXACILLIN
     Dates: start: 20200416, end: 20200423
  3. FENBID [Concomitant]
     Active Substance: IBUPROFEN
     Indication: ARTHRALGIA
     Dates: start: 20200529, end: 20200626
  4. ATENOLOL/ATENOLOL HYDROCHLORIDE [Concomitant]
     Active Substance: ATENOLOL HYDROCHLORIDE
     Indication: BLOOD PRESSURE MANAGEMENT
     Dosage: MORNING
     Dates: start: 20171102
  5. COLCHICINE. [Concomitant]
     Active Substance: COLCHICINE
     Dosage: WHEN STARTING ALLOPURINOL TABLETS. MAX 12 TABLETS PER COURSE. DO NOT REPEAT COURSE WITHIN 3 DAYS.
     Dates: start: 20200603, end: 20200607
  6. PARACETAMOL [Concomitant]
     Active Substance: ACETAMINOPHEN
     Indication: PAIN
     Dates: start: 20171102
  7. APIXABAN [Concomitant]
     Active Substance: APIXABAN
     Dosage: UNTIL 1/6/2020 ? YOUR DOSE...
     Dates: start: 20191127
  8. ALLOPURINOL. [Suspect]
     Active Substance: ALLOPURINOL
     Indication: PRODUCT USED FOR UNKNOWN INDICATION
     Dosage: STOP IF YOU GET A RAS.
     Dates: start: 20200603
  9. CLARITHROMYCIN. [Concomitant]
     Active Substance: CLARITHROMYCIN
     Dates: start: 20200423, end: 20200430
  10. RAMIPRIL. [Concomitant]
     Active Substance: RAMIPRIL
     Dosage: NIGHT
     Dates: start: 20191127

REACTIONS (1)
  - Gastrointestinal disorder [Recovering/Resolving]

NARRATIVE: CASE EVENT DATE: 20200707
